FAERS Safety Report 10219015 (Version 2)
Quarter: 2014Q3

REPORT INFORMATION
  Report Type: Spontaneous
  Country: US (occurrence: US)
  Receive Date: 20140605
  Receipt Date: 20140717
  Transmission Date: 20150326
  Serious: No
  Sender: FDA-Public Use
  Company Number: US-009507513-1406USA000797

PATIENT
  Age: 23 Year
  Sex: Female
  Weight: 65.31 kg

DRUGS (5)
  1. NEXPLANON [Suspect]
     Active Substance: ETONOGESTREL
     Indication: CONTRACEPTION
     Dosage: 1 ROD, EVERY 3 YEARS
     Route: 059
     Dates: start: 20140529
  2. CLARITIN [Concomitant]
     Active Substance: LORATADINE
  3. NEXPLANON [Suspect]
     Active Substance: ETONOGESTREL
     Indication: ADVERSE EVENT
  4. ABILIFY [Concomitant]
     Active Substance: ARIPIPRAZOLE
  5. RANITIDINE [Concomitant]
     Active Substance: RANITIDINE\RANITIDINE HYDROCHLORIDE

REACTIONS (4)
  - Limb discomfort [Unknown]
  - Nausea [Unknown]
  - Menstruation delayed [Unknown]
  - Implant site pain [Unknown]

NARRATIVE: CASE EVENT DATE: 201405
